FAERS Safety Report 4536631-8 (Version None)
Quarter: 2005Q1

REPORT INFORMATION
  Report Type: 
  Country: None (occurrence: None)
  Receive Date: 20041222
  Receipt Date: 20041222
  Transmission Date: 20050727
  Serious: Yes (Life-Threatening, Hospitalization)
  Sender: FDA-Public Use
  Company Number: None

PATIENT
  Sex: Male
  Weight: 83.9154 kg

DRUGS (7)
  1. ALAVERT D-12  SUDAFED- 120 MG. LORATADINE- 5 MG  WYETH CONSUMER HEALTH [Suspect]
     Indication: SINUS HEADACHE
     Dosage: 1 PILL ONE TIME ORAL
     Route: 048
     Dates: start: 20041120, end: 20041120
  2. SUDAFED 12 HOUR [Suspect]
  3. LORATADINE [Suspect]
     Dosage: 5 MG
  4. NYQUIL [Concomitant]
  5. ACETAMINOPHEN [Concomitant]
  6. ALAVERT D12 [Concomitant]
  7. ACETAMINOPHEN [Concomitant]

REACTIONS (2)
  - CARDIAC ARREST [None]
  - VENTRICULAR FIBRILLATION [None]
